FAERS Safety Report 6528955-X (Version None)
Quarter: 2009Q4

REPORT INFORMATION
  Report Type: 
  Country: None (occurrence: None)
  Receive Date: 20091224
  Receipt Date: 20091215
  Transmission Date: 20100525
  Serious: Yes (Hospitalization)
  Sender: FDA-Public Use
  Company Number: A-CH2009-31958

PATIENT
  Age: 81 Year
  Sex: Female

DRUGS (3)
  1. TRACLEER [Suspect]
     Indication: DRUG USE FOR UNKNOWN INDICATION
     Dosage: 62.5 MG, BID, ORAL ; ORAL
     Route: 048
     Dates: start: 20091213
  2. FUSID (FUROSEMIDE) [Concomitant]
  3. ALDACTONE [Concomitant]

REACTIONS (1)
  - CELLULITIS [None]
